FAERS Safety Report 5743019-0 (Version None)
Quarter: 2008Q2

REPORT INFORMATION
  Report Type: 
  Country: None (occurrence: None)
  Receive Date: 20080515
  Receipt Date: 20080515
  Transmission Date: 20081010
  Serious: Yes (Life-Threatening, Hospitalization, Other)
  Sender: FDA-Public Use
  Company Number: None

PATIENT
  Age: 71 Year
  Sex: Female
  Weight: 63.9572 kg

DRUGS (1)
  1. PROLEUKIN [Suspect]
     Indication: METASTATIC MALIGNANT MELANOMA
     Dates: start: 20080403, end: 20080404

REACTIONS (8)
  - ANOREXIA [None]
  - CAPILLARY LEAK SYNDROME [None]
  - CONSTIPATION [None]
  - DIARRHOEA [None]
  - DRUG TOXICITY [None]
  - GAIT DISTURBANCE [None]
  - RENAL FAILURE ACUTE [None]
  - WEIGHT DECREASED [None]
